FAERS Safety Report 5145737-4 (Version None)
Quarter: 2006Q4

REPORT INFORMATION
  Report Type: 
  Country: None (occurrence: None)
  Receive Date: 20060915
  Receipt Date: 20051006
  Transmission Date: 20070319
  Serious: Yes (Other)
  Sender: FDA-Public Use
  Company Number: 2005138886

PATIENT
  Sex: Female

DRUGS (6)
  1. GLUCOTROL XL [Suspect]
     Indication: DIABETES MELLITUS
     Dosage: 20 MG (10 MG,2 IN  1 D),ORAL
     Route: 048
  2. GLIPIZIDE [Suspect]
     Indication: DIABETES MELLITUS
     Dosage: ORAL
     Route: 048
  3. AVANDIA [Suspect]
     Indication: DIABETES MELLITUS
  4. ACTOS [Suspect]
     Indication: DIABETES MELLITUS
  5. NOVOLIN N [Suspect]
     Indication: DIABETES MELLITUS
  6. DIOVAN [Concomitant]

REACTIONS (7)
  - CARDIAC DISORDER [None]
  - DIABETES MELLITUS INADEQUATE CONTROL [None]
  - FLUID RETENTION [None]
  - HEADACHE [None]
  - HUNGER [None]
  - NAUSEA [None]
  - TREMOR [None]
